FAERS Safety Report 13628205 (Version 1)
Quarter: 2017Q2

REPORT INFORMATION
  Report Type: Spontaneous
  Country: US (occurrence: US)
  Receive Date: 20170531
  Receipt Date: 20170531
  Transmission Date: 20170830
  Serious: Yes (Hospitalization, Other)
  Sender: FDA-Public Use
  Company Number: US-ASTELLAS-1790953

PATIENT
  Sex: Female

DRUGS (2)
  1. TARCEVA [Suspect]
     Active Substance: ERLOTINIB HYDROCHLORIDE
     Indication: METASTASES TO ADRENALS
     Route: 048
     Dates: start: 20151124, end: 20160305
  2. NEUPOGEN [Concomitant]
     Active Substance: FILGRASTIM
     Indication: PRODUCT USED FOR UNKNOWN INDICATION
     Dosage: ON DAY 1 AND DAY 8 EVERY 21 DAY CYCLE
     Route: 058
     Dates: start: 20151124, end: 20160305

REACTIONS (5)
  - Alopecia [Unknown]
  - Dyspnoea [Unknown]
  - Pneumonia [Unknown]
  - Rash [Unknown]
  - Sepsis [Unknown]
